FAERS Safety Report 8479247 (Version 10)
Quarter: 2012Q4

REPORT INFORMATION
  Report Type: 
  Country: US (occurrence: US)
  Receive Date: 20120328
  Receipt Date: 20121109
  Transmission Date: 20130627
  Serious: Yes (Death, Hospitalization, Other)
  Sender: FDA-Public Use
  Company Number: US-BIOGENIDEC-2012BI009687

PATIENT
  Age: 69 Year
  Sex: Male
  Weight: 109 kg

DRUGS (14)
  1. TYSABRI [Suspect]
     Indication: MULTIPLE SCLEROSIS
     Route: 042
     Dates: start: 20070219, end: 20120224
  2. ASA [Concomitant]
     Route: 048
  3. ATORVASTATIN [Concomitant]
     Route: 048
  4. BACLOFEN [Concomitant]
     Indication: MUSCLE SPASTICITY
     Route: 048
  5. FLAXSEED OIL [Concomitant]
  6. GLYBERIDE [Concomitant]
     Route: 048
  7. GLYBERIDE [Concomitant]
     Route: 048
  8. LISINOPRIL [Concomitant]
     Route: 048
  9. METHYLPHENIDATE [Concomitant]
     Indication: FATIGUE
     Route: 048
  10. METHYLPHENIDATE [Concomitant]
     Indication: HYPERSOMNIA
     Route: 048
  11. NIACIN [Concomitant]
     Route: 048
  12. PIOGLITAZONE [Concomitant]
     Route: 048
  13. VENLAFAXINE [Concomitant]
     Route: 048
  14. AMPYRA [Concomitant]
     Indication: GAIT DISTURBANCE
     Route: 048
     Dates: start: 201107, end: 20120502

REACTIONS (6)
  - Progressive multifocal leukoencephalopathy [Fatal]
  - Immune reconstitution inflammatory syndrome [Not Recovered/Not Resolved]
  - Convulsion [Recovered/Resolved]
  - Multiple sclerosis [Unknown]
  - Herpes zoster [Recovered/Resolved]
  - Gait disturbance [Unknown]
